FAERS Safety Report 23902511 (Version 1)
Quarter: 2024Q2

REPORT INFORMATION
  Report Type: Spontaneous
  Country: SI (occurrence: SI)
  Receive Date: 20240527
  Receipt Date: 20240527
  Transmission Date: 20240716
  Serious: Yes (Other)
  Sender: FDA-Public Use
  Company Number: SI-BoehringerIngelheim-2024-BI-028576

PATIENT
  Age: 66 Year
  Sex: Male

DRUGS (8)
  1. EMPAGLIFLOZIN [Suspect]
     Active Substance: EMPAGLIFLOZIN
     Indication: Product used for unknown indication
     Dates: start: 201606
  2. DABIGATRAN [Suspect]
     Active Substance: DABIGATRAN
     Indication: Atrial fibrillation
  3. perindopril/ amlodipine [Concomitant]
     Indication: Product used for unknown indication
     Dosage: 10/10 MG
  4. GLICLAZIDE [Concomitant]
     Active Substance: GLICLAZIDE
     Indication: Product used for unknown indication
  5. PANTOPRAZOLE [Concomitant]
     Active Substance: PANTOPRAZOLE
     Indication: Product used for unknown indication
  6. methformin [Concomitant]
     Indication: Product used for unknown indication
  7. ASPIRIN [Concomitant]
     Active Substance: ASPIRIN
     Indication: Product used for unknown indication
  8. ROSUVASTATIN [Concomitant]
     Active Substance: ROSUVASTATIN
     Indication: Product used for unknown indication

REACTIONS (17)
  - Ischaemic stroke [Unknown]
  - Ischaemic stroke [Recovered/Resolved]
  - Femur fracture [Unknown]
  - COVID-19 [Unknown]
  - Peripheral arterial occlusive disease [Unknown]
  - Urine ketone body present [Recovered/Resolved]
  - Euglycaemic diabetic ketoacidosis [Recovered/Resolved]
  - Proteinuria [Unknown]
  - Microalbuminuria [Recovered/Resolved]
  - Urine ketone body present [Recovered/Resolved]
  - Diabetic neuropathy [Unknown]
  - Glycosylated haemoglobin increased [Unknown]
  - Blood glucose increased [Unknown]
  - Atrial fibrillation [Not Recovered/Not Resolved]
  - Anaemia [Unknown]
  - Haemoglobin decreased [Unknown]
  - Melaena [Unknown]

NARRATIVE: CASE EVENT DATE: 20160415
